FAERS Safety Report 18260436 (Version 1)
Quarter: 2020Q3

REPORT INFORMATION
  Report Type: Spontaneous
  Country: FR (occurrence: FR)
  Receive Date: 20200914
  Receipt Date: 20200914
  Transmission Date: 20201103
  Serious: Yes (Hospitalization)
  Sender: FDA-Public Use
  Company Number: FR-TEVA-2020-FR-1825495

PATIENT
  Age: 33 Year
  Sex: Male

DRUGS (2)
  1. CLOZAPINE. [Suspect]
     Active Substance: CLOZAPINE
     Indication: PSYCHIATRIC DECOMPENSATION
     Dosage: 175MG
     Route: 048
     Dates: start: 20200716
  2. TERCIAN [Suspect]
     Active Substance: CYAMEMAZINE
     Indication: PSYCHIATRIC DECOMPENSATION
     Dosage: 25MG
     Route: 048
     Dates: start: 20200625

REACTIONS (1)
  - Hepatocellular injury [Recovering/Resolving]

NARRATIVE: CASE EVENT DATE: 20200724
